FAERS Safety Report 11773308 (Version 1)
Quarter: 2015Q4

REPORT INFORMATION
  Report Type: Spontaneous
  Country: FR (occurrence: FR)
  Receive Date: 20151124
  Receipt Date: 20151124
  Transmission Date: 20160304
  Serious: Yes (Life-Threatening)
  Sender: FDA-Public Use
  Company Number: FR-BAYER-2015-473550

PATIENT
  Sex: Female

DRUGS (1)
  1. ULTRAVIST [Suspect]
     Active Substance: IOPROMIDE
     Indication: ABDOMEN SCAN
     Dosage: UNK UNK, ONCE
     Dates: start: 20151104, end: 20151104

REACTIONS (5)
  - Oedema [None]
  - Respiratory disorder [None]
  - Feeling hot [None]
  - Nausea [None]
  - Shock [None]

NARRATIVE: CASE EVENT DATE: 20151104
